FAERS Safety Report 18658264 (Version 1)
Quarter: 2020Q4

REPORT INFORMATION
  Report Type: Spontaneous
  Country: US (occurrence: US)
  Receive Date: 20201223
  Receipt Date: 20201223
  Transmission Date: 20210114
  Serious: Yes (Other)
  Sender: FDA-Public Use
  Company Number: US-BAYER-2020-281272

PATIENT
  Age: 44 Year
  Sex: Male

DRUGS (1)
  1. BETASERON [Suspect]
     Active Substance: INTERFERON BETA-1B
     Indication: MULTIPLE SCLEROSIS
     Dosage: 1 ML
     Dates: start: 2018

REACTIONS (4)
  - Muscular weakness [None]
  - Gait disturbance [None]
  - Peroneal nerve palsy [None]
  - Multiple sclerosis relapse [None]

NARRATIVE: CASE EVENT DATE: 202011
